FAERS Safety Report 25184436 (Version 2)
Quarter: 2025Q2

REPORT INFORMATION
  Report Type: Spontaneous
  Country: HU (occurrence: HU)
  Receive Date: 20250410
  Receipt Date: 20250514
  Transmission Date: 20250717
  Serious: Yes (Other)
  Sender: PFIZER
  Company Number: HU-ROCHE-10000247261

PATIENT

DRUGS (1)
  1. RITUXIMAB [Suspect]
     Active Substance: RITUXIMAB
     Route: 065

REACTIONS (4)
  - Muscular weakness [Unknown]
  - Insomnia [Unknown]
  - Heart rate irregular [Unknown]
  - Fatigue [Unknown]
